FAERS Safety Report 5756568-6 (Version None)
Quarter: 2008Q2

REPORT INFORMATION
  Report Type: 
  Country: None (occurrence: None)
  Receive Date: 20080603
  Receipt Date: 20080523
  Transmission Date: 20081010
  Serious: Yes (Hospitalization, Other)
  Sender: FDA-Public Use
  Company Number: JP-JNJFOC-20080504433

PATIENT
  Sex: Female
  Weight: 50 kg

DRUGS (10)
  1. REMICADE [Suspect]
     Route: 042
  2. REMICADE [Suspect]
     Route: 042
  3. REMICADE [Suspect]
     Indication: RHEUMATOID ARTHRITIS
     Route: 042
  4. PREDONINE [Concomitant]
     Indication: RHEUMATOID ARTHRITIS
     Route: 048
  5. TAKEPRON [Concomitant]
     Route: 048
  6. HYPEN [Concomitant]
     Route: 048
  7. MUCOSTA [Concomitant]
     Route: 048
  8. BONALON [Concomitant]
     Indication: OSTEOPOROSIS
     Route: 048
  9. RHEUMATREX [Concomitant]
     Indication: RHEUMATOID ARTHRITIS
     Route: 048
  10. FOLIAMIN [Concomitant]
     Route: 048

REACTIONS (1)
  - MONONEUROPATHY MULTIPLEX [None]
